FAERS Safety Report 5358270-1 (Version None)
Quarter: 2007Q2

REPORT INFORMATION
  Report Type: 
  Country: None (occurrence: None)
  Receive Date: 20070530
  Receipt Date: 20061031
  Transmission Date: 20071010
  Serious: Yes (Hospitalization)
  Sender: FDA-Public Use
  Company Number: US200603002129

PATIENT
  Age: 42 Year
  Sex: Female
  Weight: 126.1 kg

DRUGS (5)
  1. ZYPREXA [Suspect]
     Indication: DEPRESSION
     Dosage: 10 MG
  2. SEROQUEL [Concomitant]
  3. GEODON [Concomitant]
  4. TRILEPTAL [Concomitant]
  5. BUPROPION HCL [Concomitant]

REACTIONS (2)
  - BLOOD GLUCOSE DECREASED [None]
  - DIABETES MELLITUS [None]
